FAERS Safety Report 21034872 (Version 1)
Quarter: 2022Q3

REPORT INFORMATION
  Report Type: Spontaneous
  Country: US (occurrence: US)
  Receive Date: 20220701
  Receipt Date: 20220701
  Transmission Date: 20221026
  Serious: Yes (Other)
  Sender: FDA-Public Use
  Company Number: US-GLAXOSMITHKLINE-US2022099772

PATIENT

DRUGS (2)
  1. TRELEGY ELLIPTA [Suspect]
     Active Substance: FLUTICASONE FUROATE\UMECLIDINIUM BROMIDE\VILANTEROL TRIFENATATE
     Indication: Chronic obstructive pulmonary disease
     Dosage: 1 PUFF(S), QD100/62.5/25MCG
  2. GABAPENTIN [Suspect]
     Active Substance: GABAPENTIN
     Indication: Spinal fracture
     Dosage: 300 MG
     Dates: start: 202112

REACTIONS (4)
  - Spinal fracture [Unknown]
  - Fall [Unknown]
  - Dyspnoea [Not Recovered/Not Resolved]
  - Incorrect dose administered [Unknown]

NARRATIVE: CASE EVENT DATE: 20211201
